FAERS Safety Report 16761443 (Version 1)
Quarter: 2019Q3

REPORT INFORMATION
  Report Type: Spontaneous
  Country: CN (occurrence: CN)
  Receive Date: 20190830
  Receipt Date: 20190830
  Transmission Date: 20191005
  Serious: Yes (Hospitalization)
  Sender: FDA-Public Use
  Company Number: CN-ROCHE-2394335

PATIENT
  Age: 33 Year
  Sex: Female

DRUGS (2)
  1. GANCICLOVIR. [Suspect]
     Active Substance: GANCICLOVIR
     Indication: ENCEPHALITIS VIRAL
     Route: 065
  2. ACICLOVIR [Suspect]
     Active Substance: ACYCLOVIR
     Indication: ENCEPHALITIS VIRAL
     Route: 065

REACTIONS (8)
  - Cough [Recovered/Resolved]
  - Pyrexia [Recovered/Resolved]
  - Urinary retention [Recovered/Resolved]
  - Encephalitis autoimmune [Recovered/Resolved]
  - Altered state of consciousness [Recovered/Resolved]
  - Decreased appetite [Recovered/Resolved]
  - Arrhythmia [Recovered/Resolved]
  - Mental disorder [Recovered/Resolved]
